FAERS Safety Report 26191894 (Version 1)
Quarter: 2025Q4

REPORT INFORMATION
  Report Type: Spontaneous
  Country: US (occurrence: US)
  Receive Date: 20251223
  Receipt Date: 20251223
  Transmission Date: 20260118
  Serious: No
  Sender: ACCORD
  Company Number: US-Accord-440625

PATIENT
  Age: 17 Year
  Sex: Male

DRUGS (1)
  1. QUETIAPINE FUMARATE [Suspect]
     Active Substance: QUETIAPINE FUMARATE
     Indication: Schizophrenia
     Dosage: EXTENDED RELEASE TABLET; STRENGTH: 300 MG; TWICE DAILY
     Route: 048

REACTIONS (2)
  - Adverse event [Unknown]
  - Product availability issue [Unknown]
